FAERS Safety Report 19926431 (Version 2)
Quarter: 2021Q4

REPORT INFORMATION
  Report Type: Report from Study
  Country: US (occurrence: US)
  Receive Date: 20211006
  Receipt Date: 20211119
  Transmission Date: 20220303
  Serious: No
  Sender: FDA-Public Use
  Company Number: US-SUNOVION-2021SUN003668

PATIENT
  Age: 82 Year
  Sex: Female

DRUGS (2)
  1. KYNMOBI [Suspect]
     Active Substance: APOMORPHINE HYDROCHLORIDE
     Indication: Product used for unknown indication
     Dosage: UNK
     Route: 060
  2. KYNMOBI [Suspect]
     Active Substance: APOMORPHINE HYDROCHLORIDE
     Dosage: 30 MG, TID
     Route: 060
     Dates: start: 20210927

REACTIONS (4)
  - Agitation [Unknown]
  - Oral discomfort [Unknown]
  - Drug intolerance [Unknown]
  - Lip swelling [Unknown]

NARRATIVE: CASE EVENT DATE: 20210927
